FAERS Safety Report 25980037 (Version 1)
Quarter: 2025Q4

REPORT INFORMATION
  Report Type: Spontaneous
  Country: US (occurrence: None)
  Receive Date: 20251029
  Receipt Date: 20251029
  Transmission Date: 20260117
  Serious: Yes (Hospitalization)
  Sender: FDA-CTU
  Company Number: None

PATIENT
  Age: 68 Year
  Sex: Male
  Weight: 77.2 kg

DRUGS (5)
  1. CEFTRIAXONE [Suspect]
     Active Substance: CEFTRIAXONE
     Indication: Urinary tract infection
     Dosage: FREQUENCY : DAILY;?
     Route: 042
     Dates: start: 20250919, end: 20251010
  2. CEFTRIAXONE [Suspect]
     Active Substance: CEFTRIAXONE
     Indication: Prostatic abscess
  3. ZOSYN [Concomitant]
     Active Substance: PIPERACILLIN SODIUM\TAZOBACTAM SODIUM
     Dates: start: 20250917, end: 20250918
  4. NAPROXEN [Concomitant]
     Active Substance: NAPROXEN
     Dates: start: 20250917, end: 20250918
  5. METRONIDAZOLE [Concomitant]
     Active Substance: METRONIDAZOLE
     Dates: start: 20250919, end: 20251010

REACTIONS (6)
  - Pyrexia [None]
  - Decreased appetite [None]
  - Confusional state [None]
  - Rectoprostatic fistula [None]
  - Neutropenia [None]
  - Therapy cessation [None]

NARRATIVE: CASE EVENT DATE: 20251010
